FAERS Safety Report 7150915-9 (Version None)
Quarter: 2010Q4

REPORT INFORMATION
  Report Type: 
  Country: None (occurrence: None)
  Receive Date: 20101210
  Receipt Date: 20101130
  Transmission Date: 20110411
  Serious: Yes (Other)
  Sender: FDA-Public Use
  Company Number: FR-ELI_LILLY_AND_COMPANY-FR201011007548

PATIENT
  Sex: Male

DRUGS (8)
  1. GEMCITABINE HCL [Suspect]
     Indication: PANCREATIC CARCINOMA
     Dosage: 1000 MG/M2(1296MG), WEEKLY
     Route: 042
     Dates: start: 20100311, end: 20100603
  2. OTHER PHARMA COMPANY INV DRUG [Suspect]
     Indication: PANCREATIC CARCINOMA
     Dosage: 2 TABS, DAILY (1/D)
     Route: 065
     Dates: end: 20100622
  3. ALDACTONE [Concomitant]
     Indication: OEDEMA PERIPHERAL
     Dosage: 150 MG, DAILY (1/D)
     Route: 048
     Dates: start: 20100426, end: 20100615
  4. CETIRIZINE HCL [Concomitant]
     Route: 048
  5. OGASTORO [Concomitant]
     Route: 048
  6. TRIMEBUTINE [Concomitant]
     Route: 048
  7. PAROXETINE HCL [Concomitant]
     Dosage: 20 MG, DAILY (1/D)
     Route: 048
  8. CREON [Concomitant]
     Dosage: UNK, UNK
     Route: 048

REACTIONS (1)
  - GRAND MAL CONVULSION [None]
